FAERS Safety Report 16462164 (Version 1)
Quarter: 2019Q2

REPORT INFORMATION
  Report Type: Spontaneous
  Country: CZ (occurrence: CZ)
  Receive Date: 20190621
  Receipt Date: 20190621
  Transmission Date: 20190711
  Serious: Yes (Death, Other)
  Sender: FDA-Public Use
  Company Number: PHHY2019CZ101756

PATIENT
  Age: 69 Year
  Sex: Male

DRUGS (2)
  1. RAMUCIRUMAB [Suspect]
     Active Substance: RAMUCIRUMAB
     Indication: OESOPHAGEAL ADENOCARCINOMA
     Dosage: UNK
     Route: 065
     Dates: start: 201709
  2. PACLITAXEL. [Suspect]
     Active Substance: PACLITAXEL
     Indication: OESOPHAGEAL ADENOCARCINOMA
     Dosage: UNK
     Route: 065
     Dates: start: 201709

REACTIONS (7)
  - Malignant neoplasm progression [Fatal]
  - Loss of personal independence in daily activities [Unknown]
  - Product use in unapproved indication [Unknown]
  - Cachexia [Unknown]
  - Ascites [Unknown]
  - Oesophageal adenocarcinoma [Fatal]
  - Nausea [Unknown]

NARRATIVE: CASE EVENT DATE: 201810
